FAERS Safety Report 23558552 (Version 1)
Quarter: 2024Q1

REPORT INFORMATION
  Report Type: Spontaneous
  Country: US (occurrence: US)
  Receive Date: 20240223
  Receipt Date: 20240223
  Transmission Date: 20240409
  Serious: No
  Sender: FDA-Public Use
  Company Number: US-DRL-USA-LIT/USA/24/0003029

PATIENT

DRUGS (2)
  1. RISPERIDONE [Suspect]
     Active Substance: RISPERIDONE
     Indication: Product used for unknown indication
  2. CLONIDINE [Suspect]
     Active Substance: CLONIDINE
     Indication: Hypertension

REACTIONS (2)
  - Salivary hypersecretion [Not Recovered/Not Resolved]
  - Symptom masked [Unknown]
